FAERS Safety Report 10977867 (Version 1)
Quarter: 2015Q2

REPORT INFORMATION
  Report Type: Spontaneous
  Country: US (occurrence: US)
  Receive Date: 20150402
  Receipt Date: 20150402
  Transmission Date: 20150821
  Serious: Yes (Other)
  Sender: FDA-Public Use
  Company Number: US-ROCHE-1558617

PATIENT
  Age: 31 Year
  Sex: Female

DRUGS (2)
  1. CETUXIMAB [Concomitant]
     Active Substance: CETUXIMAB
  2. ZELBORAF [Suspect]
     Active Substance: VEMURAFENIB
     Indication: COLON CANCER
     Route: 065

REACTIONS (3)
  - Skin mass [Not Recovered/Not Resolved]
  - Pain [Not Recovered/Not Resolved]
  - Rash maculo-papular [Not Recovered/Not Resolved]
